FAERS Safety Report 5712656-1 (Version None)
Quarter: 2008Q2

REPORT INFORMATION
  Report Type: 
  Country: None (occurrence: None)
  Receive Date: 20080422
  Receipt Date: 20080414
  Transmission Date: 20081010
  Serious: Yes (Other)
  Sender: FDA-Public Use
  Company Number: US-BAYER-200820021NA

PATIENT
  Age: 71 Year
  Sex: Female

DRUGS (1)
  1. MAGNEVIST [Suspect]
     Indication: NUCLEAR MAGNETIC RESONANCE IMAGING
     Dosage: TOTAL DAILY DOSE: 11 ML  UNIT DOSE: 15 ML
     Route: 042
     Dates: start: 20080410, end: 20080410

REACTIONS (3)
  - CHEST DISCOMFORT [None]
  - COUGH [None]
  - WHEEZING [None]
